FAERS Safety Report 21451965 (Version 1)
Quarter: 2022Q4

REPORT INFORMATION
  Report Type: Spontaneous
  Country: CA (occurrence: CA)
  Receive Date: 20221013
  Receipt Date: 20221013
  Transmission Date: 20230113
  Serious: Yes (Hospitalization, Other)
  Sender: FDA-Public Use
  Company Number: CA-AstraZeneca-2022A319002

PATIENT
  Age: 30 Year
  Sex: Female

DRUGS (61)
  1. ABRAXANE [Suspect]
     Active Substance: PACLITAXEL
     Indication: Pancreatic carcinoma metastatic
     Dosage: 280.0MG UNKNOWN
     Route: 041
  2. ABRAXANE [Suspect]
     Active Substance: PACLITAXEL
     Dosage: 250.0MG UNKNOWN
     Route: 041
  3. ABRAXANE [Suspect]
     Active Substance: PACLITAXEL
     Dosage: 250.0MG UNKNOWN
     Route: 042
  4. ABRAXANE [Suspect]
     Active Substance: PACLITAXEL
     Dosage: 280.0MG UNKNOWN
     Route: 041
  5. ABRAXANE [Suspect]
     Active Substance: PACLITAXEL
     Dosage: 280.0MG UNKNOWN
     Route: 042
  6. ABRAXANE [Suspect]
     Active Substance: PACLITAXEL
     Dosage: 280.0MG UNKNOWN
     Route: 042
  7. DURVALUMAB [Suspect]
     Active Substance: DURVALUMAB
     Indication: Pancreatic carcinoma metastatic
     Dosage: 1500.0MG UNKNOWN
     Route: 042
  8. DURVALUMAB [Suspect]
     Active Substance: DURVALUMAB
     Dosage: 1500.0MG UNKNOWN
     Route: 042
  9. DURVALUMAB [Suspect]
     Active Substance: DURVALUMAB
     Dosage: 1500.0MG UNKNOWN
     Route: 041
  10. DURVALUMAB [Suspect]
     Active Substance: DURVALUMAB
     Dosage: 1500.0MG UNKNOWN
     Route: 042
  11. DURVALUMAB [Suspect]
     Active Substance: DURVALUMAB
     Dosage: 1500.0MG UNKNOWN
     Route: 042
  12. DURVALUMAB [Suspect]
     Active Substance: DURVALUMAB
     Dosage: 1500.0MG UNKNOWN
     Route: 042
  13. DURVALUMAB [Suspect]
     Active Substance: DURVALUMAB
     Dosage: 1500.0MG UNKNOWN
     Route: 042
  14. DURVALUMAB [Suspect]
     Active Substance: DURVALUMAB
     Dosage: 1500.0MG UNKNOWN
     Route: 041
  15. DURVALUMAB [Suspect]
     Active Substance: DURVALUMAB
     Dosage: 1500.0MG UNKNOWN
     Route: 041
  16. DURVALUMAB [Suspect]
     Active Substance: DURVALUMAB
     Dosage: 1500.0MG UNKNOWN
     Route: 041
  17. DURVALUMAB [Suspect]
     Active Substance: DURVALUMAB
     Dosage: 1500.0MG UNKNOWN
     Route: 041
  18. DURVALUMAB [Suspect]
     Active Substance: DURVALUMAB
     Dosage: 1500.0MG UNKNOWN
     Route: 042
  19. DURVALUMAB [Suspect]
     Active Substance: DURVALUMAB
     Dosage: 1500.0MG UNKNOWN
     Route: 042
  20. PACLITAXEL [Suspect]
     Active Substance: PACLITAXEL
     Indication: Product used for unknown indication
     Dosage: 280.0MG UNKNOWN
     Route: 042
  21. PACLITAXEL [Suspect]
     Active Substance: PACLITAXEL
     Dosage: 280.0MG UNKNOWN
     Route: 042
  22. GEMCITABINE [Suspect]
     Active Substance: GEMCITABINE
     Indication: Pancreatic carcinoma metastatic
     Dosage: 2200.0MG UNKNOWN
     Route: 041
  23. GEMCITABINE [Suspect]
     Active Substance: GEMCITABINE
     Dosage: 2200.0MG UNKNOWN
     Route: 041
  24. GEMCITABINE [Suspect]
     Active Substance: GEMCITABINE
     Dosage: 2200.0MG UNKNOWN
     Route: 042
  25. GEMCITABINE [Suspect]
     Active Substance: GEMCITABINE
     Dosage: 2200.0MG UNKNOWN
     Route: 042
  26. GEMCITABINE [Suspect]
     Active Substance: GEMCITABINE
     Dosage: 2200.0MG UNKNOWN
     Route: 041
  27. GEMCITABINE [Suspect]
     Active Substance: GEMCITABINE
     Dosage: 2200.0MG UNKNOWN
     Route: 041
  28. TREMELIMUMAB [Suspect]
     Active Substance: TREMELIMUMAB
     Indication: Pancreatic carcinoma metastatic
     Dosage: 75.0MG UNKNOWN
     Route: 042
  29. TREMELIMUMAB [Suspect]
     Active Substance: TREMELIMUMAB
     Dosage: 75.0MG UNKNOWN
     Route: 041
  30. TREMELIMUMAB [Suspect]
     Active Substance: TREMELIMUMAB
     Dosage: 75.0MG UNKNOWN
     Route: 041
  31. TREMELIMUMAB [Suspect]
     Active Substance: TREMELIMUMAB
     Dosage: 75.0MG UNKNOWN
     Route: 042
  32. TOCILIZUMAB [Suspect]
     Active Substance: TOCILIZUMAB
     Indication: Pancreatic carcinoma metastatic
     Route: 041
  33. TOCILIZUMAB [Suspect]
     Active Substance: TOCILIZUMAB
     Dosage: 75.0MG UNKNOWN
     Route: 042
  34. DEXAMETHASONE [Concomitant]
     Active Substance: DEXAMETHASONE
     Indication: Nausea
     Route: 065
  35. FILGRASTIM [Concomitant]
     Active Substance: FILGRASTIM
     Indication: Growth hormone deficiency
     Dosage: 1500.0MG UNKNOWN
     Route: 065
  36. HYDROMORPHONE [Concomitant]
     Active Substance: HYDROMORPHONE
     Indication: Abdominal discomfort
     Route: 065
  37. LEVOMEPROMAZINE [Concomitant]
     Active Substance: LEVOMEPROMAZINE
     Indication: Nausea
     Route: 065
  38. LORAZEPAM [Concomitant]
     Active Substance: LORAZEPAM
     Indication: Nausea
     Route: 065
  39. LORAZEPAM [Concomitant]
     Active Substance: LORAZEPAM
     Route: 065
  40. LORAZEPAM [Concomitant]
     Active Substance: LORAZEPAM
     Route: 065
  41. PANTOPRAZOLE SODIUM [Concomitant]
     Active Substance: PANTOPRAZOLE SODIUM
     Indication: Abdominal discomfort
     Route: 065
  42. PANTOPRAZOLE SODIUM [Concomitant]
     Active Substance: PANTOPRAZOLE SODIUM
     Route: 065
  43. PANTOPRAZOLE SODIUM [Concomitant]
     Active Substance: PANTOPRAZOLE SODIUM
     Route: 065
  44. ALBUTEROL [Concomitant]
     Active Substance: ALBUTEROL
     Indication: Dyspnoea
     Route: 065
  45. ALBUTEROL [Concomitant]
     Active Substance: ALBUTEROL
     Route: 065
  46. ALBUTEROL [Concomitant]
     Active Substance: ALBUTEROL
     Route: 065
  47. SENNA [Concomitant]
     Active Substance: SENNA LEAF\SENNOSIDES\SENNOSIDES A AND B
     Indication: Constipation
     Route: 065
  48. SENNA [Concomitant]
     Active Substance: SENNA LEAF\SENNOSIDES\SENNOSIDES A AND B
     Route: 065
  49. SENNA [Concomitant]
     Active Substance: SENNA LEAF\SENNOSIDES\SENNOSIDES A AND B
     Route: 065
  50. SENNA [Concomitant]
     Active Substance: SENNA LEAF\SENNOSIDES\SENNOSIDES A AND B
     Route: 065
  51. SENNA [Concomitant]
     Active Substance: SENNA LEAF\SENNOSIDES\SENNOSIDES A AND B
     Route: 065
  52. TYLENOL [Concomitant]
     Active Substance: ACETAMINOPHEN
     Indication: Product used for unknown indication
     Route: 065
  53. VITAMIN C [Concomitant]
     Active Substance: ASCORBIC ACID
     Indication: Vitamin supplementation
     Route: 065
  54. VITAMIN C [Concomitant]
     Active Substance: ASCORBIC ACID
     Indication: Hypovitaminosis
     Route: 065
  55. VITAMIN C [Concomitant]
     Active Substance: ASCORBIC ACID
     Route: 065
  56. VITAMIN C [Concomitant]
     Active Substance: ASCORBIC ACID
     Route: 065
  57. VITAMIN C [Concomitant]
     Active Substance: ASCORBIC ACID
     Route: 065
  58. VITAMIN C [Concomitant]
     Active Substance: ASCORBIC ACID
     Route: 065
  59. ADVIL [Concomitant]
     Active Substance: IBUPROFEN
     Indication: Back pain
     Route: 065
  60. ARIPIPRAZOLE [Concomitant]
     Active Substance: ARIPIPRAZOLE
     Indication: Anxiety
     Route: 065
  61. DIPHENHYDRAMINE [Concomitant]
     Active Substance: DIPHENHYDRAMINE
     Indication: Rash
     Route: 065

REACTIONS (6)
  - Bacillus infection [Not Recovered/Not Resolved]
  - Biliary tract infection [Not Recovered/Not Resolved]
  - Cholangitis infective [Not Recovered/Not Resolved]
  - Febrile neutropenia [Not Recovered/Not Resolved]
  - Photosensitivity reaction [Not Recovered/Not Resolved]
  - Pyrexia [Not Recovered/Not Resolved]
